FAERS Safety Report 24790821 (Version 1)
Quarter: 2024Q4

REPORT INFORMATION
  Report Type: Spontaneous
  Country: FR (occurrence: FR)
  Receive Date: 20241230
  Receipt Date: 20241230
  Transmission Date: 20250115
  Serious: Yes (Other)
  Sender: CHEMISCHE FABRIK KREUSSLER
  Company Number: FR-AFSSAPS-LL2024002296

PATIENT
  Age: 54 Year
  Sex: Female
  Weight: 67 kg

DRUGS (1)
  1. POLIDOCANOL [Suspect]
     Active Substance: POLIDOCANOL
     Indication: Varicose vein
     Dosage: APPLIED CONCENTRATION 0.25%
     Route: 042
     Dates: start: 20241126, end: 20241126

REACTIONS (2)
  - Aphasia [Recovered/Resolved]
  - Transient ischaemic attack [Recovered/Resolved]

NARRATIVE: CASE EVENT DATE: 20241128
